FAERS Safety Report 8357608-0 (Version None)
Quarter: 2012Q2

REPORT INFORMATION
  Report Type: 
  Country: None (occurrence: None)
  Receive Date: 20120511
  Receipt Date: 20120426
  Transmission Date: 20120825
  Serious: Yes (Hospitalization)
  Sender: FDA-Public Use
  Company Number: ACET20120005

PATIENT
  Age: 64 Year
  Sex: Female

DRUGS (1)
  1. ACETAMINOPHEN [Suspect]
     Indication: OVERDOSE
     Dosage: 100 GM,  ORAL
     Route: 048

REACTIONS (10)
  - METABOLIC ACIDOSIS [None]
  - ELECTROCARDIOGRAM QRS COMPLEX PROLONGED [None]
  - HEART RATE IRREGULAR [None]
  - HYPOTENSION [None]
  - HYPOTHERMIA [None]
  - LOSS OF CONSCIOUSNESS [None]
  - BRADYCARDIA [None]
  - HEPATITIS TOXIC [None]
  - RHABDOMYOLYSIS [None]
  - OVERDOSE [None]
